FAERS Safety Report 6010896-8 (Version None)
Quarter: 2008Q4

REPORT INFORMATION
  Report Type: 
  Country: None (occurrence: None)
  Receive Date: 20081217
  Receipt Date: 20081217
  Transmission Date: 20090506
  Serious: Yes (Hospitalization, Disabling, Other)
  Sender: FDA-Public Use
  Company Number: None

PATIENT
  Age: 28 Year
  Sex: Female
  Weight: 49.8957 kg

DRUGS (1)
  1. MIRENA [Suspect]
     Indication: CONTRACEPTION
     Dosage: IUD
     Route: 015
     Dates: start: 20080313, end: 20081204

REACTIONS (9)
  - AMNESIA [None]
  - ARTHRALGIA [None]
  - DEPRESSION [None]
  - DISTURBANCE IN ATTENTION [None]
  - HAEMORRHAGE [None]
  - IUD MIGRATION [None]
  - MOOD SWINGS [None]
  - THYROIDITIS [None]
  - UTERINE RUPTURE [None]
